FAERS Safety Report 8373699-5 (Version None)
Quarter: 2012Q2

REPORT INFORMATION
  Report Type: 
  Country: None (occurrence: None)
  Receive Date: 20120521
  Receipt Date: 20120510
  Transmission Date: 20120825
  Serious: Yes (Other)
  Sender: FDA-Public Use
  Company Number: JP-ASTRAZENECA-2012SE31588

PATIENT
  Age: 64 Year
  Sex: Male

DRUGS (16)
  1. DIOVAN [Concomitant]
     Indication: HYPERTENSION
     Route: 048
  2. AMLODIPINE [Concomitant]
     Indication: HYPERTENSION
     Route: 048
  3. RANITAC [Concomitant]
     Indication: GASTRITIS
     Route: 048
  4. CLONAZEPAM [Concomitant]
     Route: 048
  5. PRECIPITATED CALCIUM CARBONATE [Concomitant]
     Indication: RENAL FAILURE CHRONIC
     Route: 048
  6. MECOBALAMIN [Concomitant]
     Indication: NEUROPATHY PERIPHERAL
     Route: 048
  7. ARGAMATE [Concomitant]
     Indication: RENAL FAILURE CHRONIC
     Route: 048
  8. KINEX [Concomitant]
     Indication: DIABETIC NEUROPATHY
     Route: 048
  9. NOVORAPID [Concomitant]
     Indication: DIABETES MELLITUS
     Route: 058
  10. EQUA [Concomitant]
     Indication: DIABETES MELLITUS
     Route: 048
  11. FOSRENOL [Concomitant]
     Indication: RENAL FAILURE CHRONIC
     Route: 048
  12. MEROPENEM [Suspect]
     Indication: PNEUMONIA
     Route: 042
     Dates: start: 20120322, end: 20120410
  13. PRORENAL [Concomitant]
     Indication: PERIPHERAL ARTERIAL OCCLUSIVE DISEASE
     Route: 048
  14. LASIX [Concomitant]
     Indication: RENAL FAILURE CHRONIC
     Route: 048
     Dates: end: 20120417
  15. RASILEZ [Concomitant]
     Indication: HYPERTENSION
     Route: 048
  16. MEROPENEM [Suspect]
     Indication: PLEURISY
     Route: 042
     Dates: start: 20120322, end: 20120410

REACTIONS (1)
  - FEBRILE NEUTROPENIA [None]
